FAERS Safety Report 15715364 (Version 1)
Quarter: 2018Q4

REPORT INFORMATION
  Report Type: Report from Study
  Country: GT (occurrence: GT)
  Receive Date: 20181212
  Receipt Date: 20181212
  Transmission Date: 20190205
  Serious: Yes (Other)
  Sender: FDA-Public Use
  Company Number: GT-SA-2018SA332245

PATIENT
  Age: 61 Year
  Sex: Male

DRUGS (1)
  1. HYDROCHLOROTHIAZIDE/IRBESARTAN [Suspect]
     Active Substance: HYDROCHLOROTHIAZIDE\IRBESARTAN
     Indication: HYPERTENSION
     Dosage: 1 DF, QD/ ORAL TABLET OF 300 MG OF IRBESARTAN + 12.5 MG OF HYDROCHLOROTHIAZIDE EVERY 24 HOURS
     Route: 048
     Dates: start: 201711

REACTIONS (2)
  - Facial paralysis [Recovered/Resolved with Sequelae]
  - Typhoid fever [Recovered/Resolved with Sequelae]

NARRATIVE: CASE EVENT DATE: 20180804
